FAERS Safety Report 7587926-5 (Version None)
Quarter: 2011Q3

REPORT INFORMATION
  Report Type: 
  Country: None (occurrence: None)
  Receive Date: 20110705
  Receipt Date: 20110627
  Transmission Date: 20111222
  Serious: Yes (Other)
  Sender: FDA-Public Use
  Company Number: NL-AMGEN-NLDSP2011033202

PATIENT
  Age: 70 Year
  Sex: Female

DRUGS (3)
  1. ENBREL [Suspect]
     Indication: RHEUMATOID ARTHRITIS
     Dosage: 50 MG, WEEKLY
     Dates: start: 20100101
  2. PANTOZOL                           /01263202/ [Concomitant]
     Dosage: UNK
  3. METHOTREXATE SODIUM [Concomitant]
     Dosage: UNK

REACTIONS (3)
  - INSOMNIA [None]
  - RESPIRATORY TRACT INFECTION [None]
  - PALPITATIONS [None]
